FAERS Safety Report 9914258 (Version 1)
Quarter: 2014Q1

REPORT INFORMATION
  Report Type: Spontaneous
  Country: IT (occurrence: None)
  Receive Date: 20140218
  Receipt Date: 20140218
  Transmission Date: 20141002
  Serious: Yes (Other)
  Sender: FDA-Public Use
  Company Number: IT-DEXPHARM-20140038

PATIENT
  Age: 72 Year
  Sex: Male

DRUGS (5)
  1. OMEPRAZOLE [Suspect]
  2. ALLOPURINOL [Concomitant]
  3. ASPIRIN [Concomitant]
  4. ATORVASTATIN [Concomitant]
  5. FUROSEMIDE [Concomitant]

REACTIONS (5)
  - Drug interaction [None]
  - Rhabdomyolysis [None]
  - Nausea [None]
  - Vomiting [None]
  - Fall [None]
